FAERS Safety Report 5142383-3 (Version None)
Quarter: 2006Q4

REPORT INFORMATION
  Report Type: 
  Country: None (occurrence: None)
  Receive Date: 20061102
  Receipt Date: 20061027
  Transmission Date: 20070319
  Serious: Yes (Hospitalization)
  Sender: FDA-Public Use
  Company Number: CN-GLAXOSMITHKLINE-B0444861A

PATIENT
  Sex: Male

DRUGS (1)
  1. FORTUM [Suspect]
     Indication: RHEUMATIC HEART DISEASE
     Dosage: 2G SINGLE DOSE
     Route: 042
     Dates: start: 20061015, end: 20061015

REACTIONS (3)
  - HAEMATOCHEZIA [None]
  - NAUSEA [None]
  - VOMITING [None]
